FAERS Safety Report 6314824-7 (Version None)
Quarter: 2009Q3

REPORT INFORMATION
  Report Type: 
  Country: None (occurrence: None)
  Receive Date: 20090817
  Receipt Date: 20090817
  Transmission Date: 20100115
  Serious: No
  Sender: FDA-Public Use
  Company Number: None

PATIENT
  Age: 80 Year
  Sex: Male
  Weight: 70.3075 kg

DRUGS (1)
  1. XANAX [Suspect]

REACTIONS (1)
  - DYSPNOEA [None]
